FAERS Safety Report 5928668-9 (Version None)
Quarter: 2008Q4

REPORT INFORMATION
  Report Type: 
  Country: None (occurrence: None)
  Receive Date: 20081023
  Receipt Date: 20081015
  Transmission Date: 20090506
  Serious: No
  Sender: FDA-Public Use
  Company Number: US-B.I. PHARMACEUTICALS,INC./RIDGEFIELD-2008-BP-15942BP

PATIENT
  Sex: Male

DRUGS (7)
  1. SPIRIVA [Suspect]
     Indication: EMPHYSEMA
     Dosage: 18MCG
     Route: 055
     Dates: start: 20080701, end: 20080801
  2. ATROVENT [Concomitant]
     Indication: EMPHYSEMA
     Route: 055
     Dates: start: 20081001
  3. AMLODIPINE [Concomitant]
  4. LISINOPRIL [Concomitant]
  5. CETIRIZINE HCL [Concomitant]
  6. METOPROLOL TARTRATE [Concomitant]
  7. SIMVASTATIN [Concomitant]

REACTIONS (1)
  - DISEASE PROGRESSION [None]
